FAERS Safety Report 10166122 (Version 30)
Quarter: 2017Q1

REPORT INFORMATION
  Report Type: Report from Study
  Country: CA (occurrence: CA)
  Receive Date: 20140512
  Receipt Date: 20170317
  Transmission Date: 20170428
  Serious: Yes (Hospitalization, Other)
  Sender: FDA-Public Use
  Company Number: CA-ROCHE-1343701

PATIENT
  Age: 33 Year
  Sex: Male
  Weight: 75 kg

DRUGS (19)
  1. ACTEMRA [Suspect]
     Active Substance: TOCILIZUMAB
     Route: 042
     Dates: start: 20141211
  2. ACTEMRA [Suspect]
     Active Substance: TOCILIZUMAB
     Route: 042
     Dates: start: 20150106
  3. PREDNISONE. [Suspect]
     Active Substance: PREDNISONE
     Route: 065
  4. ALEVE [Concomitant]
     Active Substance: NAPROXEN SODIUM
  5. AMOXICILLIN. [Concomitant]
     Active Substance: AMOXICILLIN
     Route: 065
     Dates: start: 20150501
  6. PREDNISONE. [Suspect]
     Active Substance: PREDNISONE
     Route: 065
  7. PREDNISOLONE. [Suspect]
     Active Substance: PREDNISOLONE
     Indication: PRODUCT USED FOR UNKNOWN INDICATION
     Route: 065
  8. ENTECAVIR. [Concomitant]
     Active Substance: ENTECAVIR
     Route: 065
     Dates: start: 20170308
  9. ACTEMRA [Suspect]
     Active Substance: TOCILIZUMAB
     Indication: JUVENILE IDIOPATHIC ARTHRITIS
     Route: 042
     Dates: start: 20140115, end: 20170203
  10. ACTEMRA [Suspect]
     Active Substance: TOCILIZUMAB
     Route: 042
     Dates: start: 20150605
  11. OXYCODONE [Concomitant]
     Active Substance: OXYCODONE
  12. PREDNISONE. [Suspect]
     Active Substance: PREDNISONE
     Route: 065
  13. PREDNISONE. [Suspect]
     Active Substance: PREDNISONE
     Route: 065
  14. PREDNISONE. [Suspect]
     Active Substance: PREDNISONE
     Route: 065
  15. FOLIC ACID. [Concomitant]
     Active Substance: FOLIC ACID
  16. PREDNISONE. [Suspect]
     Active Substance: PREDNISONE
     Indication: PRODUCT USED FOR UNKNOWN INDICATION
     Dosage: HE WAS DOWN TO 15 MG FOR TWO WEEKS THEN 10 MG FOR TWO WEEKS THEN 9 MG FOR TWO WEEKS THEN 8 MG FOR TW
     Route: 065
  17. COVERSYL [Concomitant]
     Active Substance: PERINDOPRIL
     Indication: HYPERTENSION
  18. RISEDRONATE [Concomitant]
     Active Substance: RISEDRONATE SODIUM
  19. METHOTREXATE. [Concomitant]
     Active Substance: METHOTREXATE

REACTIONS (22)
  - Sepsis [Unknown]
  - Heart rate increased [Unknown]
  - Blood pressure increased [Unknown]
  - Cholelithiasis [Recovered/Resolved]
  - Glucose tolerance impaired [Not Recovered/Not Resolved]
  - Blood pressure decreased [Unknown]
  - Throat irritation [Not Recovered/Not Resolved]
  - Chest pain [Unknown]
  - Weight fluctuation [Unknown]
  - Weight decreased [Not Recovered/Not Resolved]
  - Arthralgia [Recovered/Resolved]
  - Diarrhoea [Unknown]
  - Infusion related reaction [Unknown]
  - Weight increased [Not Recovered/Not Resolved]
  - Cough [Recovering/Resolving]
  - Osteomalacia [Unknown]
  - Hepatitis B core antibody positive [Unknown]
  - Drug ineffective [Unknown]
  - Hepatitis C core antibody positive [Unknown]
  - Juvenile idiopathic arthritis [Unknown]
  - Blood pressure diastolic increased [Unknown]
  - Synovitis [Unknown]

NARRATIVE: CASE EVENT DATE: 201403
